FAERS Safety Report 16279256 (Version 4)
Quarter: 2019Q3

REPORT INFORMATION
  Report Type: Spontaneous
  Country: US (occurrence: US)
  Receive Date: 20190506
  Receipt Date: 20190710
  Transmission Date: 20191004
  Serious: Yes (Other)
  Sender: FDA-Public Use
  Company Number: US-BIOGEN-2019BI00733093

PATIENT
  Sex: Male

DRUGS (1)
  1. AVONEX [Suspect]
     Active Substance: INTERFERON BETA-1A
     Indication: MULTIPLE SCLEROSIS
     Route: 030
     Dates: start: 19980501, end: 20020807

REACTIONS (4)
  - Needle fatigue [Unknown]
  - Hypoacusis [Unknown]
  - Dyspepsia [Unknown]
  - Blindness [Not Recovered/Not Resolved]

NARRATIVE: CASE EVENT DATE: 1999
